FAERS Safety Report 25246720 (Version 1)
Quarter: 2025Q2

REPORT INFORMATION
  Report Type: Spontaneous
  Country: US (occurrence: US)
  Receive Date: 20250428
  Receipt Date: 20250428
  Transmission Date: 20250716
  Serious: No
  Sender: MERCK SHARP & DOHME LLC
  Company Number: US-009507513-2271423

PATIENT
  Age: 19 Year
  Sex: Male

DRUGS (3)
  1. SUGAMMADEX [Suspect]
     Active Substance: SUGAMMADEX
     Indication: General anaesthesia
  2. PROPOFOL [Concomitant]
     Active Substance: PROPOFOL
     Indication: General anaesthesia
  3. SUCCINYLCHOLINE [Concomitant]
     Active Substance: SUCCINYLCHOLINE
     Indication: General anaesthesia

REACTIONS (1)
  - Product use in unapproved indication [Unknown]
